FAERS Safety Report 9770719 (Version 2)
Quarter: 2013Q4

REPORT INFORMATION
  Report Type: Report from Study
  Country: US (occurrence: US)
  Receive Date: 20131218
  Receipt Date: 20131218
  Transmission Date: 20140711
  Serious: Yes (Hospitalization)
  Sender: FDA-Public Use
  Company Number: US-BAYER-2013-140306

PATIENT
  Age: 59 Year
  Sex: Female

DRUGS (2)
  1. STIVARGA [Suspect]
     Indication: COLON CANCER
     Dosage: 80 MG, QD, 40 MG, 2 TABLETS, DAILY
     Route: 048
     Dates: start: 20131029, end: 20131031
  2. STIVARGA [Suspect]
     Indication: COLON CANCER
     Dosage: 80 MG, QD, 40 MG, 2 TABLETS, DAILY
     Route: 048
     Dates: start: 20131112, end: 20131117

REACTIONS (4)
  - Vomiting [Recovered/Resolved]
  - Asthenia [Not Recovered/Not Resolved]
  - Dehydration [Not Recovered/Not Resolved]
  - Vomiting [Recovered/Resolved]
